FAERS Safety Report 9037941 (Version 2)
Quarter: 2013Q3

REPORT INFORMATION
  Report Type: Spontaneous
  Country: JP (occurrence: JP)
  Receive Date: 20130129
  Receipt Date: 20130731
  Transmission Date: 20140515
  Serious: Yes (Other)
  Sender: FDA-Public Use
  Company Number: PHHY2012JP116989

PATIENT
  Age: 76 Year
  Sex: Male
  Weight: 65 kg

DRUGS (7)
  1. NEORAL [Suspect]
     Indication: APLASTIC ANAEMIA
     Dosage: 400 MG/DAY
     Dates: start: 20110920
  2. NEORAL [Interacting]
     Dosage: 150 MG/DAY
  3. EXJADE [Interacting]
     Indication: IRON OVERLOAD
     Dosage: 1000 MG, QD
     Dates: end: 20120228
  4. ITRIZOLE [Interacting]
     Indication: ANTIFUNGAL PROPHYLAXIS
     Route: 048
  5. VFEND [Interacting]
     Indication: ASPERGILLUS INFECTION
     Dosage: 520 MG, QD
     Route: 042
     Dates: end: 20120209
  6. VFEND [Interacting]
     Dosage: 600 MG, QD
     Dates: end: 20120209
  7. GRAN [Concomitant]

REACTIONS (7)
  - Aspergillus infection [Not Recovered/Not Resolved]
  - Immunosuppressant drug level increased [Recovering/Resolving]
  - Blood urea increased [Unknown]
  - Oedema peripheral [Recovering/Resolving]
  - Drug interaction [Recovering/Resolving]
  - Nausea [Recovered/Resolved]
  - Blood creatinine increased [Not Recovered/Not Resolved]
